FAERS Safety Report 6316773-7 (Version None)
Quarter: 2009Q3

REPORT INFORMATION
  Report Type: 
  Country: None (occurrence: None)
  Receive Date: 20090820
  Receipt Date: 20090811
  Transmission Date: 20100115
  Serious: Yes (Hospitalization)
  Sender: FDA-Public Use
  Company Number: PHEH2009US06095

PATIENT

DRUGS (14)
  1. GLEEVEC [Suspect]
     Indication: CHRONIC MYELOID LEUKAEMIA
     Dosage: 600 MG, UNK
  2. ASPIRIN [Concomitant]
     Dosage: 325 MG, QD
  3. CARVEDILOL [Concomitant]
     Dosage: 25 MG QAM, 50 MG QHS
  4. RAMIPRIL [Concomitant]
     Dosage: 10 MG, BID
  5. NORVASC [Concomitant]
     Dosage: 10 MG, UNK
  6. JANUVIA [Concomitant]
     Dosage: 50 MG, QD
  7. LOVAZA [Concomitant]
     Dosage: 2 G, BID
  8. ACARBOSE [Concomitant]
     Dosage: 50 MG, TID
  9. CRESTOR [Concomitant]
     Dosage: 40 MG, UNK
  10. IRON [Concomitant]
     Dosage: 325 MG, UNK
  11. TYLENOL (CAPLET) [Concomitant]
     Dosage: UNK
  12. COPERAMIDE [Concomitant]
  13. ALPHAGAN [Concomitant]
  14. COSOPT [Concomitant]

REACTIONS (4)
  - BLOOD CREATININE INCREASED [None]
  - DIALYSIS [None]
  - DRUG RESISTANCE [None]
  - RENAL FAILURE ACUTE [None]
